FAERS Safety Report 17964376 (Version 1)
Quarter: 2020Q2

REPORT INFORMATION
  Report Type: Spontaneous
  Country: US (occurrence: US)
  Receive Date: 20200630
  Receipt Date: 20200630
  Transmission Date: 20200714
  Serious: Yes (Other)
  Sender: FDA-Public Use
  Company Number: US-SAOL THERAPEUTICS-2020SAO00192

PATIENT
  Sex: Female
  Weight: 54.42 kg

DRUGS (1)
  1. LIORESAL [Suspect]
     Active Substance: BACLOFEN
     Route: 037

REACTIONS (4)
  - Implant site extravasation [Unknown]
  - Fall [Recovered/Resolved]
  - Therapeutic response changed [Unknown]
  - Complication associated with device [Recovered/Resolved]
